FAERS Safety Report 9296020 (Version 1)
Quarter: 2013Q2

REPORT INFORMATION
  Report Type: Report from Study
  Country: GB (occurrence: GB)
  Receive Date: 20130517
  Receipt Date: 20130517
  Transmission Date: 20140414
  Serious: Yes (Hospitalization)
  Sender: FDA-Public Use
  Company Number: GB-ELI_LILLY_AND_COMPANY-GB201210003799

PATIENT
  Age: 66 Year
  Sex: Female
  Weight: 74.8 kg

DRUGS (14)
  1. PEMETREXED [Suspect]
     Indication: NON-SMALL CELL LUNG CANCER
     Dosage: 900 MG/M2, OTHER
     Route: 042
     Dates: start: 20121002, end: 20121022
  2. PEMETREXED [Suspect]
     Dosage: 500 MG/M2, OTHER
     Dates: start: 20121023
  3. PEMETREXED [Suspect]
     Dosage: 300 MG/M2, UNK
     Dates: start: 20121114
  4. TAXOL [Suspect]
     Indication: NON-SMALL CELL LUNG CANCER
     Dosage: 318 MG/M2, OTHER
     Route: 042
     Dates: start: 20121002, end: 20121022
  5. TAXOL [Suspect]
     Dosage: 175 MG/M2, OTHER
     Dates: start: 20121023
  6. TAXOL [Suspect]
     Dosage: 106 MG/M2, UNK
     Dates: start: 20121114
  7. FOLIC ACID [Concomitant]
     Indication: PROPHYLAXIS
     Dosage: QD
     Route: 048
     Dates: start: 20120914
  8. BENDROFLUAZIDE [Concomitant]
     Indication: HYPERTENSION
     Dosage: 2.5 MG, QD
     Route: 048
     Dates: start: 201010
  9. SIMVASTATIN [Concomitant]
     Indication: BLOOD CHOLESTEROL INCREASED
     Dosage: 40 MG, QD
     Route: 048
     Dates: start: 201010
  10. METOCLOPRAMIDE [Concomitant]
     Indication: PROPHYLAXIS OF NAUSEA AND VOMITING
     Dosage: 20 MG, PRN
     Route: 048
     Dates: start: 20121002
  11. CODEINE [Concomitant]
     Indication: PAIN
     Dosage: 30 MG, QD
     Route: 048
     Dates: start: 201209
  12. CHLORPHENAMINE [Concomitant]
     Indication: PROPHYLAXIS
     Dosage: 10 MG, SINGLE
     Route: 042
     Dates: start: 20121224, end: 20121224
  13. RANIDINE [Concomitant]
     Indication: PROPHYLAXIS
     Dosage: 50 MG, SINGLE
     Route: 042
     Dates: start: 20121224, end: 20121224
  14. DEXAMETHASONE [Concomitant]
     Indication: PROPHYLAXIS
     Dosage: 20 MG, SINGLE
     Route: 042
     Dates: start: 20121224, end: 20121224

REACTIONS (5)
  - Vomiting [Recovered/Resolved]
  - Nausea [Recovered/Resolved]
  - Infection [Recovered/Resolved]
  - Vomiting [Recovered/Resolved]
  - Hypokalaemia [Recovered/Resolved]
